FAERS Safety Report 9989261 (Version 1)
Quarter: 2014Q1

REPORT INFORMATION
  Report Type: Spontaneous
  Country: US (occurrence: US)
  Receive Date: 20140310
  Receipt Date: 20140310
  Transmission Date: 20141002
  Serious: Yes (Hospitalization)
  Sender: FDA-Public Use
  Company Number: US-BAYER-2014-034368

PATIENT
  Age: 30 Year
  Sex: Female
  Weight: 56.78 kg

DRUGS (13)
  1. YAZ [Suspect]
     Dosage: UNK
  2. YASMIN [Suspect]
  3. XALATAN [Concomitant]
     Dosage: 0.005 UNK, UNK
  4. XANAX [Concomitant]
     Dosage: 0.5 MG, UNK
  5. DONNATAL [Concomitant]
     Dosage: 0.02/0.1/16.2MG/6.5MCG
  6. TREXIMET [Concomitant]
     Dosage: 85/500MG
  7. HYDROCODONE [Concomitant]
     Dosage: 5/500MG
  8. CYCLOBENZAPRINE [Concomitant]
     Dosage: 5 MG, UNK
  9. DICYCLOMINE [Concomitant]
     Dosage: 20 MG, UNK
  10. BELLADONNA ALKALOIDS [Concomitant]
  11. NUBAIN [Concomitant]
  12. NORCO [Concomitant]
  13. FLEXERIL [Concomitant]

REACTIONS (1)
  - Deep vein thrombosis [Recovered/Resolved]
